FAERS Safety Report 21822030 (Version 2)
Quarter: 2023Q1

REPORT INFORMATION
  Report Type: Report from Study
  Country: US (occurrence: US)
  Receive Date: 20230105
  Receipt Date: 20230309
  Transmission Date: 20230418
  Serious: Yes (Other)
  Sender: FDA-Public Use
  Company Number: US-ABBVIE-4257087

PATIENT
  Sex: Female

DRUGS (3)
  1. HUMIRA [Suspect]
     Active Substance: ADALIMUMAB
     Indication: Rheumatoid arthritis
     Route: 058
     Dates: start: 20211007, end: 20221117
  2. HUMIRA [Suspect]
     Active Substance: ADALIMUMAB
  3. COVID-19 VACCINE NOS [Suspect]
     Active Substance: COVID-19 VACCINE NOS
     Indication: COVID-19 immunisation
     Route: 065

REACTIONS (4)
  - Knee arthroplasty [Unknown]
  - Arthropathy [Unknown]
  - Musculoskeletal stiffness [Unknown]
  - Pain [Unknown]
